FAERS Safety Report 4879667-X (Version None)
Quarter: 2006Q1

REPORT INFORMATION
  Report Type: 
  Country: None (occurrence: None)
  Receive Date: 20060111
  Receipt Date: 20051228
  Transmission Date: 20060701
  Serious: Yes (Hospitalization, Other)
  Sender: FDA-Public Use
  Company Number: 2005P1000547

PATIENT
  Age: 57 Year
  Sex: Male
  Weight: 98 kg

DRUGS (16)
  1. RETEPLASE (RETEPLASE) [Suspect]
     Indication: ACUTE MYOCARDIAL INFARCTION
  2. ABCIXIMAB (ABCIXIMAB) [Suspect]
  3. ASCAL [Concomitant]
  4. SIMVASTATIN [Concomitant]
  5. METOPROLOL TARTRATE [Concomitant]
  6. METFORMIN [Concomitant]
  7. CLOPIDOGREL [Concomitant]
  8. GLIBENCLAMIDE [Concomitant]
  9. SOTALOL HCL [Concomitant]
  10. SULFASALAZINE [Concomitant]
  11. PANTOPRAZOLE [Concomitant]
  12. ENOXAPARIN [Concomitant]
  13. RANITIDINE [Concomitant]
  14. UROSCHOL [Concomitant]
  15. SULFASALAZINE [Concomitant]
  16. URSODEOXYCHOLIC ACID [Concomitant]

REACTIONS (5)
  - ATRIAL FIBRILLATION [None]
  - CARDIOMEGALY [None]
  - CHEST PAIN [None]
  - CORONARY ARTERY DISEASE [None]
  - PLEURAL DISORDER [None]
